FAERS Safety Report 10662823 (Version 2)
Quarter: 2014Q4

REPORT INFORMATION
  Report Type: Spontaneous
  Country: US (occurrence: US)
  Receive Date: 20141218
  Receipt Date: 20141224
  Transmission Date: 20150529
  Serious: Yes (Hospitalization, Other)
  Sender: FDA-Public Use
  Company Number: US-GILEAD-2014-0127687

PATIENT
  Age: 52 Year
  Sex: Female

DRUGS (5)
  1. REMODULIN [Concomitant]
     Active Substance: TREPROSTINIL
  2. LETAIRIS [Suspect]
     Active Substance: AMBRISENTAN
     Indication: PRODUCT USED FOR UNKNOWN INDICATION
     Dosage: 10 MG, QD
     Route: 065
     Dates: start: 20110827
  3. ADEMPAS [Concomitant]
     Active Substance: RIOCIGUAT
  4. ORENITRAM [Concomitant]
     Active Substance: TREPROSTINIL
  5. WARFARIN [Concomitant]
     Active Substance: WARFARIN

REACTIONS (5)
  - Pulmonary hypertension [Unknown]
  - Syncope [Unknown]
  - Seizure [Unknown]
  - Oxygen saturation decreased [Unknown]
  - Loss of consciousness [Unknown]
